FAERS Safety Report 7720862-X (Version None)
Quarter: 2011Q3

REPORT INFORMATION
  Report Type: 
  Country: None (occurrence: None)
  Receive Date: 20110825
  Receipt Date: 20110811
  Transmission Date: 20111222
  Serious: Yes (Hospitalization)
  Sender: FDA-Public Use
  Company Number: 15755143

PATIENT
  Age: 72 Year
  Sex: Female

DRUGS (11)
  1. APIXABAN [Suspect]
     Indication: EMBOLISM
     Dosage: 5 MILLIGRAM
     Route: 048
     Dates: start: 20110429
  2. DIGITOXIN TAB [Concomitant]
  3. ENOXAPARIN SODIUM [Suspect]
     Indication: EMBOLISM
     Dosage: 136 MILLIGRAM
     Route: 058
     Dates: start: 20110429
  4. PLACEBO [Suspect]
     Indication: EMBOLISM
     Route: 048
     Dates: start: 20110429
  5. WARFARIN SODIUM [Suspect]
     Indication: EMBOLISM
     Dosage: 4 MILLIGRAM 1 DAY
     Route: 048
     Dates: start: 20110429
  6. VALSARTAN [Concomitant]
  7. PANTOPRAZOLE SODIUM [Concomitant]
  8. METFORMIN (METFORMIN HCL) [Concomitant]
  9. METOPROLOL SUCCINATE [Concomitant]
  10. NITRENDIPINE (NITRENDIPINE) [Concomitant]
  11. LENDORM [Concomitant]

REACTIONS (18)
  - LEFT VENTRICULAR HYPERTROPHY [None]
  - GLYCOSYLATED HAEMOGLOBIN INCREASED [None]
  - EJECTION FRACTION DECREASED [None]
  - PULMONARY EMBOLISM [None]
  - ARTERIOVENOUS FISTULA [None]
  - PULMONARY HYPERTENSION [None]
  - ATRIAL FIBRILLATION [None]
  - ELECTROOCULOGRAM ABNORMAL [None]
  - TACHYARRHYTHMIA [None]
  - FATIGUE [None]
  - ORTHOPNOEA [None]
  - OEDEMA PERIPHERAL [None]
  - BLOOD LACTATE DEHYDROGENASE INCREASED [None]
  - BLOOD GLUCOSE INCREASED [None]
  - GAMMA-GLUTAMYLTRANSFERASE INCREASED [None]
  - CARDIOMEGALY [None]
  - DYSPNOEA [None]
  - CARDIAC VALVE DISEASE [None]
